FAERS Safety Report 15772590 (Version 1)
Quarter: 2018Q4

REPORT INFORMATION
  Report Type: Spontaneous
  Country: US (occurrence: US)
  Receive Date: 20181228
  Receipt Date: 20181228
  Transmission Date: 20190205
  Serious: No
  Sender: FDA-Public Use
  Company Number: US-DUSA PHARMACEUTICALS, INC.-2060665

PATIENT
  Sex: Male

DRUGS (2)
  1. LEVULAN KERASTICK [Suspect]
     Active Substance: AMINOLEVULINIC ACID HYDROCHLORIDE
     Indication: ACTINIC KERATOSIS
     Route: 061
     Dates: start: 20180928, end: 20180928
  2. BLU-U BLUE LIGHT PHOTODYNAMIC THERAPY ILLUMINATOR [Suspect]
     Active Substance: DEVICE

REACTIONS (3)
  - Administration site pain [Recovered/Resolved]
  - Off label use [Unknown]
  - Application site burn [Recovered/Resolved]

NARRATIVE: CASE EVENT DATE: 20180928
